FAERS Safety Report 23077026 (Version 1)
Quarter: 2023Q4

REPORT INFORMATION
  Report Type: Report from Study
  Country: CO (occurrence: CO)
  Receive Date: 20231018
  Receipt Date: 20231018
  Transmission Date: 20240110
  Serious: Yes (Other)
  Sender: FDA-Public Use
  Company Number: CO-AMGEN-COLSL2023182766

PATIENT
  Age: 64 Year
  Sex: Male

DRUGS (1)
  1. NPLATE [Suspect]
     Active Substance: ROMIPLOSTIM
     Indication: Immune thrombocytopenia
     Dosage: 600 MICROGRAM, QWK
     Route: 058
     Dates: start: 20220610, end: 20230908

REACTIONS (1)
  - Myelofibrosis [Not Recovered/Not Resolved]
